FAERS Safety Report 8256140-2 (Version None)
Quarter: 2012Q2

REPORT INFORMATION
  Report Type: 
  Country: None (occurrence: None)
  Receive Date: 20120403
  Receipt Date: 20120322
  Transmission Date: 20120825
  Serious: Yes (Hospitalization, Other)
  Sender: FDA-Public Use
  Company Number: JP-ROCHE-690242

PATIENT
  Sex: Male
  Weight: 87 kg

DRUGS (29)
  1. ACTEMRA [Suspect]
     Route: 041
     Dates: start: 20090528, end: 20090528
  2. HYDROCORTISONE SODIUM SUCCINATE [Concomitant]
     Route: 042
     Dates: start: 20090108, end: 20090108
  3. GARENOXACIN MESYLATE [Concomitant]
     Route: 048
     Dates: start: 20100409, end: 20100416
  4. ACTEMRA [Suspect]
     Route: 041
     Dates: start: 20100212, end: 20100515
  5. DASEN [Concomitant]
     Route: 048
     Dates: start: 20100409, end: 20100416
  6. BISOLVON [Concomitant]
     Route: 048
     Dates: start: 20100409, end: 20100416
  7. ACTEMRA [Suspect]
     Route: 041
     Dates: start: 20090305, end: 20090305
  8. ACTEMRA [Suspect]
     Route: 041
     Dates: start: 20090402, end: 20090402
  9. ACTEMRA [Suspect]
     Route: 041
     Dates: start: 20090625, end: 20090625
  10. ACTEMRA [Suspect]
     Route: 041
     Dates: start: 20100617, end: 20100617
  11. PREDNISOLONE [Concomitant]
     Route: 048
  12. HYDROCORTISONE SODIUM SUCCINATE [Concomitant]
     Dosage: FORM:INJECTION
     Route: 042
     Dates: start: 20090205, end: 20090205
  13. PROGRAF [Concomitant]
     Dosage: FORM: PERORAL AGENT.
     Route: 048
  14. PREDNISOLONE [Concomitant]
     Dosage: FORM: PERORAL AGENT.
     Route: 048
  15. ALLOPURINOL [Concomitant]
     Route: 048
  16. ACTEMRA [Suspect]
     Indication: RHEUMATOID ARTHRITIS
     Dosage: FORM:INJECTION
     Route: 041
     Dates: start: 20090108, end: 20090108
  17. HYDROCORTISONE SODIUM SUCCINATE [Concomitant]
     Route: 042
     Dates: start: 20090305, end: 20090305
  18. RABEPRAZOLE SODIUM [Concomitant]
     Route: 048
  19. ACTEMRA [Suspect]
     Route: 041
     Dates: start: 20091211, end: 20091211
  20. ACTEMRA [Suspect]
     Route: 041
     Dates: start: 20090723, end: 20090723
  21. ACTEMRA [Suspect]
     Route: 041
     Dates: start: 20090820, end: 20090820
  22. ACTEMRA [Suspect]
     Route: 041
     Dates: start: 20090917, end: 20090917
  23. ACTEMRA [Suspect]
     Route: 041
     Dates: start: 20100108, end: 20100108
  24. ACTEMRA [Suspect]
     Route: 041
     Dates: start: 20100812, end: 20100909
  25. ALLOPURINOL [Concomitant]
     Route: 048
  26. ACTEMRA [Suspect]
     Route: 041
     Dates: start: 20090205, end: 20090205
  27. ACTEMRA [Suspect]
     Route: 041
     Dates: start: 20090430, end: 20090430
  28. ACTEMRA [Suspect]
     Route: 041
     Dates: start: 20091113, end: 20091113
  29. LOSARTAN POTASSIUM [Concomitant]
     Route: 048

REACTIONS (4)
  - NASAL SEPTUM PERFORATION [None]
  - EPISTAXIS [None]
  - PNEUMONIA [None]
  - PERIARTHRITIS [None]
